FAERS Safety Report 8444779-0 (Version None)
Quarter: 2012Q2

REPORT INFORMATION
  Report Type: 
  Country: None (occurrence: None)
  Receive Date: 20120618
  Receipt Date: 20120605
  Transmission Date: 20120825
  Serious: No
  Sender: FDA-Public Use
  Company Number: US-ASTRAZENECA-2011SE61288

PATIENT
  Age: 72 Year
  Sex: Male

DRUGS (1)
  1. NEXIUM [Suspect]
     Route: 048

REACTIONS (5)
  - MEMORY IMPAIRMENT [None]
  - DRUG DOSE OMISSION [None]
  - NERVOUSNESS [None]
  - HEARING IMPAIRED [None]
  - MALAISE [None]
